FAERS Safety Report 13456362 (Version 1)
Quarter: 2017Q2

REPORT INFORMATION
  Report Type: Spontaneous
  Country: US (occurrence: US)
  Receive Date: 20170419
  Receipt Date: 20170419
  Transmission Date: 20170830
  Serious: Yes (Other)
  Sender: FDA-Public Use
  Company Number: None

PATIENT
  Age: 78 Year
  Sex: Female
  Weight: 59.88 kg

DRUGS (10)
  1. LEVOXYL [Concomitant]
     Active Substance: LEVOTHYROXINE SODIUM
  2. VITAMIN B12 [Concomitant]
     Active Substance: CYANOCOBALAMIN
  3. FISH OIL [Concomitant]
     Active Substance: FISH OIL
  4. FORTEO [Suspect]
     Active Substance: TERIPARATIDE
     Indication: OSTEOPOROSIS
     Dosage: ADM ROUTE - INJECTION
     Dates: start: 20170222, end: 20170402
  5. CLONIDINE PATCH [Concomitant]
     Active Substance: CLONIDINE
  6. VITAMIN D3 [Concomitant]
     Active Substance: CHOLECALCIFEROL
  7. ASPIRIN. [Concomitant]
     Active Substance: ASPIRIN
  8. VITAMIN C [Concomitant]
     Active Substance: ASCORBIC ACID
  9. CARVEDILOL. [Concomitant]
     Active Substance: CARVEDILOL
  10. CALCIUM [Concomitant]
     Active Substance: CALCIUM

REACTIONS (9)
  - Contusion [None]
  - Alopecia [None]
  - Fall [None]
  - Diarrhoea [None]
  - Dry eye [None]
  - Dry skin [None]
  - Syncope [None]
  - Blood pressure increased [None]
  - Insomnia [None]

NARRATIVE: CASE EVENT DATE: 20170222
